FAERS Safety Report 4712241-4 (Version None)
Quarter: 2005Q3

REPORT INFORMATION
  Report Type: 
  Country: None (occurrence: None)
  Receive Date: 20050712
  Receipt Date: 20010828
  Transmission Date: 20060218
  Serious: Yes (Hospitalization)
  Sender: FDA-Public Use
  Company Number: US-GLAXOSMITHKLINE-B0118897BA

PATIENT
  Age: 1 Day
  Sex: Male
  Weight: 3.7 kg

DRUGS (13)
  1. RETROVIR [Suspect]
     Indication: ANTIVIRAL PROPHYLAXIS
     Dates: start: 20000915, end: 20000915
  2. STAVUDINE [Suspect]
     Indication: ANTIVIRAL PROPHYLAXIS
     Dosage: 3.7MG TWICE PER DAY
     Route: 048
     Dates: start: 20000915, end: 20001103
  3. EPIVIR [Suspect]
     Indication: HIV INFECTION
     Dosage: 150MG TWICE PER DAY
     Dates: start: 20000106
  4. STAVUDINE [Suspect]
     Indication: HIV INFECTION
     Dosage: 40MG TWICE PER DAY
     Dates: start: 20000106
  5. RITONAVIR [Suspect]
     Indication: HIV INFECTION
     Dosage: 100MG TWICE PER DAY
     Dates: start: 20000106
  6. SAQUINAVIR [Suspect]
     Indication: HIV INFECTION
     Dosage: 200MG EIGHT TIMES PER DAY
     Dates: start: 20000106
  7. ACYCLOVIR [Concomitant]
  8. CLAMOXYL [Concomitant]
     Indication: ILL-DEFINED DISORDER
  9. ECONAZOLE NITRATE [Concomitant]
     Indication: ILL-DEFINED DISORDER
  10. IRON SALT [Concomitant]
     Indication: ILL-DEFINED DISORDER
  11. NETILMICIN SULFATE [Concomitant]
     Indication: ILL-DEFINED DISORDER
  12. PROPACETAMOL HYDROCHLORIDE [Concomitant]
     Indication: ILL-DEFINED DISORDER
  13. SPASFON [Concomitant]
     Indication: ILL-DEFINED DISORDER

REACTIONS (13)
  - BLOOD CREATINE PHOSPHOKINASE INCREASED [None]
  - BLOOD KETONE BODY INCREASED [None]
  - BLOOD LACTIC ACID INCREASED [None]
  - BLOOD PYRUVIC ACID DECREASED [None]
  - DRUG EXPOSURE DURING PREGNANCY [None]
  - FAILURE TO THRIVE [None]
  - HAEMANGIOMA [None]
  - HYPERTRIGLYCERIDAEMIA [None]
  - LABORATORY TEST ABNORMAL [None]
  - MACROCYTOSIS [None]
  - METABOLIC DISORDER [None]
  - NEUTROPENIA [None]
  - PLATELET COUNT INCREASED [None]
